FAERS Safety Report 4843976-0 (Version None)
Quarter: 2005Q4

REPORT INFORMATION
  Report Type: 
  Country: None (occurrence: None)
  Receive Date: 20051130
  Receipt Date: 20051130
  Transmission Date: 20060501
  Serious: Yes (Other)
  Sender: FDA-Public Use
  Company Number: None

PATIENT
  Sex: Female

DRUGS (11)
  1. ZOSYN [Suspect]
     Indication: PNEUMONIA
     Dosage: 3.375 GRAMS EVERY 6' HOURS IV
     Route: 042
     Dates: start: 20050713, end: 20050715
  2. TOBRAMYCIN [Concomitant]
  3. VANCOMYCIN [Concomitant]
  4. REGLAN [Concomitant]
  5. AZITHROMYCIN [Concomitant]
  6. DIPHENHYDRAMINE HCL [Concomitant]
  7. ENALAPRIL [Concomitant]
  8. LOVENOX [Concomitant]
  9. HYCODAN [Concomitant]
  10. LANTUS [Concomitant]
  11. HUMALOG [Concomitant]

REACTIONS (4)
  - AGITATION [None]
  - HYPOAESTHESIA [None]
  - TREMOR [None]
  - URTICARIA [None]
